FAERS Safety Report 12907624 (Version 10)
Quarter: 2018Q4

REPORT INFORMATION
  Report Type: Report from Study
  Country: DE (occurrence: DE)
  Receive Date: 20161103
  Receipt Date: 20181008
  Transmission Date: 20190204
  Serious: Yes (Death, Hospitalization, Other)
  Sender: FDA-Public Use
  Company Number: DE-PFIZER INC-2016505181

PATIENT
  Age: 55 Year
  Sex: Female
  Weight: 72 kg

DRUGS (5)
  1. EXEMESTANE. [Suspect]
     Active Substance: EXEMESTANE
     Dosage: 25 MG, 1X/DAY
     Dates: start: 20160803, end: 20160929
  2. EXEMESTANE. [Suspect]
     Active Substance: EXEMESTANE
     Dosage: 1 DF, 1X/DAY
     Route: 065
     Dates: start: 20160930, end: 20161010
  3. EXEMESTANE. [Suspect]
     Active Substance: EXEMESTANE
     Indication: BREAST CANCER METASTATIC
     Dosage: 25 MG, 1X/DAY
     Route: 065
     Dates: start: 20160803, end: 20160929
  4. AFINITOR [Suspect]
     Active Substance: EVEROLIMUS
     Indication: BREAST CANCER METASTATIC
     Dosage: 10 MG, 1X/DAY
     Route: 048
     Dates: start: 20160803, end: 20160921
  5. AFINITOR [Suspect]
     Active Substance: EVEROLIMUS
     Dosage: 10 MG, 1X/DAY
     Route: 048
     Dates: start: 20160922, end: 20161010

REACTIONS (5)
  - Thrombocytopenia [Fatal]
  - Neoplasm progression [Fatal]
  - Neutropenia [Fatal]
  - Bone pain [Recovered/Resolved]
  - Fatigue [Recovered/Resolved]

NARRATIVE: CASE EVENT DATE: 20160818
